FAERS Safety Report 24417084 (Version 2)
Quarter: 2024Q4

REPORT INFORMATION
  Report Type: Spontaneous
  Country: CN (occurrence: CN)
  Receive Date: 20241009
  Receipt Date: 20241018
  Transmission Date: 20250115
  Serious: Yes (Death, Life-Threatening, Hospitalization, Other)
  Sender: SANOFI AVENTIS
  Company Number: CN-MLMSERVICE-20240927-PI209854-00270-1

PATIENT
  Age: 74 Year
  Sex: Female

DRUGS (8)
  1. DUPILUMAB [Suspect]
     Active Substance: DUPILUMAB
     Indication: Pemphigoid
     Dosage: 600 MG (300 MG INJECTED TWICE)
     Route: 058
  2. DUPILUMAB [Suspect]
     Active Substance: DUPILUMAB
     Dosage: 300 MG, QOW
     Route: 058
  3. METHYLPREDNISOLONE [Suspect]
     Active Substance: METHYLPREDNISOLONE
     Indication: Pemphigoid
     Dosage: 40 MG, QD
     Route: 048
  4. METHYLPREDNISOLONE [Suspect]
     Active Substance: METHYLPREDNISOLONE
     Dosage: 16 MG, QD (DOSAGE ADJUSTED AFTER ONE WEEK, WITH A DOSE OF 20 MG IN THE MORNING AND 16 MG IN THE EVEN
     Route: 048
  5. METHYLPREDNISOLONE [Suspect]
     Active Substance: METHYLPREDNISOLONE
     Dosage: 4 MG (DOSAGE WAS REDUCED )
     Route: 048
  6. METHYLPREDNISOLONE [Suspect]
     Active Substance: METHYLPREDNISOLONE
     Dosage: 20 MG, QD (DOSAGE ADJUSTED AFTER ONE WEEK, WITH A DOSE OF 20 MG IN THE MORNING AND 16 MG IN THE EVEN
     Route: 048
  7. METHYLPREDNISOLONE [Suspect]
     Active Substance: METHYLPREDNISOLONE
     Dosage: 12 MG, QD (DOSAGE ADJUSTED TO 16 MG IN THE MORNING AND 12 MG IN THE EVENING)
     Route: 048
  8. METHYLPREDNISOLONE [Suspect]
     Active Substance: METHYLPREDNISOLONE
     Dosage: 16 MG, QD (DOSAGE ADJUSTED TO 16 MG IN THE MORNING AND 12 MG IN THE EVENING)
     Route: 048

REACTIONS (16)
  - Pneumonia [Fatal]
  - Enterococcal infection [Recovering/Resolving]
  - Respiratory failure [Recovering/Resolving]
  - Dyspnoea [Recovering/Resolving]
  - Fatigue [Recovering/Resolving]
  - Central nervous system viral infection [Recovering/Resolving]
  - Immunosuppression [Recovering/Resolving]
  - Viral sepsis [Recovering/Resolving]
  - Central nervous system infection [Recovering/Resolving]
  - Depressed level of consciousness [Recovering/Resolving]
  - Cytomegalovirus infection [Recovering/Resolving]
  - Epstein-Barr virus infection [Recovering/Resolving]
  - Herpes simplex [Recovering/Resolving]
  - Varicella zoster virus infection [Recovering/Resolving]
  - Human herpesvirus 7 infection [Recovering/Resolving]
  - Off label use [Unknown]
